FAERS Safety Report 14600704 (Version 1)
Quarter: 2018Q1

REPORT INFORMATION
  Report Type: Spontaneous
  Country: US (occurrence: US)
  Receive Date: 20180305
  Receipt Date: 20180305
  Transmission Date: 20180509
  Serious: No
  Sender: FDA-Public Use
  Company Number: US-SUNOVION-2018SUN000666

PATIENT
  Sex: Male

DRUGS (4)
  1. VISTARIL [Concomitant]
     Active Substance: HYDROXYZINE PAMOATE
  2. LATUDA [Suspect]
     Active Substance: LURASIDONE HYDROCHLORIDE
     Route: 048
  3. AMBIEN [Concomitant]
     Active Substance: ZOLPIDEM TARTRATE
  4. TEGRETOL [Concomitant]
     Active Substance: CARBAMAZEPINE

REACTIONS (1)
  - Insomnia [Unknown]
